FAERS Safety Report 5226047-3 (Version None)
Quarter: 2007Q1

REPORT INFORMATION
  Report Type: 
  Country: None (occurrence: None)
  Receive Date: 20070129
  Receipt Date: 20070112
  Transmission Date: 20070707
  Serious: Yes (Life-Threatening, Hospitalization)
  Sender: FDA-Public Use
  Company Number: 07-000110

PATIENT
  Age: 31 Year
  Sex: Female

DRUGS (6)
  1. DURICEF [Suspect]
     Indication: NASOPHARYNGEAL DISORDER
     Dosage: ORAL
     Route: 048
     Dates: start: 20060824, end: 20060826
  2. DURICEF [Suspect]
     Indication: PHARYNGEAL OEDEMA
     Dosage: ORAL
     Route: 048
     Dates: start: 20060824, end: 20060826
  3. DURICEF [Suspect]
     Indication: PHARYNGOLARYNGEAL PAIN
     Dosage: ORAL
     Route: 048
     Dates: start: 20060824, end: 20060826
  4. IBUPROFEN [Suspect]
     Indication: NASOPHARYNGEAL DISORDER
     Dosage: ORAL
     Route: 048
     Dates: start: 20060824, end: 20060826
  5. IBUPROFEN [Suspect]
     Indication: PHARYNGEAL OEDEMA
     Dosage: ORAL
     Route: 048
     Dates: start: 20060824, end: 20060826
  6. IBUPROFEN [Suspect]
     Indication: PHARYNGOLARYNGEAL PAIN
     Dosage: ORAL
     Route: 048
     Dates: start: 20060824, end: 20060826

REACTIONS (6)
  - EYE EXCISION [None]
  - EYE INFECTION [None]
  - FLUSHING [None]
  - THROMBOSIS [None]
  - TOXIC EPIDERMAL NECROLYSIS [None]
  - UNEVALUABLE EVENT [None]
